FAERS Safety Report 8123604-1 (Version None)
Quarter: 2012Q1

REPORT INFORMATION
  Report Type: 
  Country: None (occurrence: None)
  Receive Date: 20120208
  Receipt Date: 20120203
  Transmission Date: 20120608
  Serious: Yes (Hospitalization, Other)
  Sender: FDA-Public Use
  Company Number: PHHY2012BR009451

PATIENT
  Sex: Male

DRUGS (1)
  1. DIOVAN HCT [Suspect]
     Dosage: 01 DF (VALSARTAN 160 MG, HYDROCHLOROTHIAZIDE 12.5 MG), UNK

REACTIONS (2)
  - RENAL FAILURE [None]
  - DIABETES MELLITUS [None]
